FAERS Safety Report 17446036 (Version 2)
Quarter: 2020Q1

REPORT INFORMATION
  Report Type: Report from Study
  Country: GB (occurrence: GB)
  Receive Date: 20200221
  Receipt Date: 20200228
  Transmission Date: 20200409
  Serious: Yes (Hospitalization)
  Sender: FDA-Public Use
  Company Number: GB-BRISTOL-MYERS SQUIBB COMPANY-BMS-2020-014229

PATIENT
  Age: 75 Year
  Sex: Female
  Weight: 81.3 kg

DRUGS (2)
  1. BLINDED NIVOLUMAB [Suspect]
     Active Substance: NIVOLUMAB
     Indication: MESOTHELIOMA
     Dosage: 240 MILLIGRAM
     Route: 042
     Dates: start: 20200116, end: 20200128
  2. BLINDED PLACEBO [Suspect]
     Active Substance: INVESTIGATIONAL PRODUCT
     Indication: MESOTHELIOMA
     Dosage: 240 MILLIGRAM
     Route: 042
     Dates: start: 20200116, end: 20200128

REACTIONS (1)
  - Ataxia [Recovered/Resolved]

NARRATIVE: CASE EVENT DATE: 20200214
